FAERS Safety Report 4783093-1 (Version None)
Quarter: 2005Q3

REPORT INFORMATION
  Report Type: 
  Country: None (occurrence: None)
  Receive Date: 20050929
  Receipt Date: 20050921
  Transmission Date: 20060218
  Serious: Yes (Hospitalization, Other)
  Sender: FDA-Public Use
  Company Number: 200516724US

PATIENT
  Age: 84 Year
  Sex: Male

DRUGS (13)
  1. KETEK [Suspect]
     Dosage: DOSE: UNK
     Route: 048
  2. ADVAIR DISKUS 100/50 [Concomitant]
     Dosage: DOSE: UNK
     Route: 055
  3. ATROVENT [Concomitant]
     Dosage: DOSE: UNK
     Route: 055
  4. VITAMIN B COMPLEX CAP [Concomitant]
     Dosage: DOSE: UNK
  5. WARFARIN SODIUM [Concomitant]
     Dosage: DOSE: UNK
  6. IMDUR [Concomitant]
     Dosage: DOSE: UNK
  7. POTASSIUM CHLORIDE [Concomitant]
     Dosage: DOSE: UNK
  8. PLAVIX [Concomitant]
     Dosage: DOSE: UNK
  9. LENOXICAPS [Concomitant]
     Dosage: DOSE: UNK
  10. LASIX [Concomitant]
     Dosage: DOSE: UNK
  11. MICARDIS [Concomitant]
     Dosage: DOSE: UNK
  12. ZANTAC [Concomitant]
     Dosage: DOSE: UNK
  13. UNKNOWN DRUG [Concomitant]

REACTIONS (7)
  - BRONCHITIS [None]
  - CHRONIC OBSTRUCTIVE PULMONARY DISEASE [None]
  - DYSPNOEA [None]
  - HAEMATOCRIT DECREASED [None]
  - HAEMOGLOBIN DECREASED [None]
  - HAEMOLYTIC ANAEMIA [None]
  - HAPTOGLOBIN INCREASED [None]
